FAERS Safety Report 8060480-X (Version None)
Quarter: 2012Q1

REPORT INFORMATION
  Report Type: 
  Country: None (occurrence: None)
  Receive Date: 20120120
  Receipt Date: 20120110
  Transmission Date: 20120608
  Serious: Yes (Other)
  Sender: FDA-Public Use
  Company Number: GB-ALLERGAN-1116326US

PATIENT
  Age: 74 Year
  Sex: Female

DRUGS (4)
  1. COSOPT [Concomitant]
     Indication: GLAUCOMA
     Dosage: 1 DF, QD
     Route: 047
     Dates: start: 20101001
  2. LUMIGAN [Concomitant]
     Indication: GLAUCOMA
     Dosage: 1 DF, QD
     Route: 047
     Dates: start: 20100709
  3. ALPHAGAN [Suspect]
     Indication: GLAUCOMA
     Dosage: 1 DF, BID
     Route: 061
     Dates: start: 20101001, end: 20111202
  4. DIAMOX SRC [Concomitant]
     Indication: GLAUCOMA
     Dosage: 250 MG, QID
     Route: 048
     Dates: start: 20110201

REACTIONS (2)
  - IRIDOCYCLITIS [None]
  - EYE INFLAMMATION [None]
